FAERS Safety Report 11272878 (Version 1)
Quarter: 2015Q3

REPORT INFORMATION
  Report Type: Spontaneous
  Country: US (occurrence: None)
  Receive Date: 20150713
  Receipt Date: 20150713
  Transmission Date: 20151125
  Serious: No
  Sender: FDA-Public Use
  Company Number: 2014-00023

PATIENT
  Age: 28 Year
  Sex: Female
  Weight: 61.24 kg

DRUGS (2)
  1. ZICAM NOS [Suspect]
     Active Substance: ACETAMINOPHEN\CHLORPHENIRAMINE MALEATE\DEXTROMETHORPHAN HYDROBROMIDE\PHENYLEPHRINE HYDROCHLORIDE OR ACETAMINOPHEN\DEXTROMETHORPHAN HYDROBROMIDE\DOXYLAMINE SUCCINATE\PHENYLEPHRINE HYDROCHLORIDE
     Indication: FATIGUE
     Dosage: 1 TABLET ORALLY EVERY 3 HOURS
     Route: 048
     Dates: start: 20140129, end: 20140131
  2. ZICAM NOS [Suspect]
     Active Substance: ACETAMINOPHEN\CHLORPHENIRAMINE MALEATE\DEXTROMETHORPHAN HYDROBROMIDE\PHENYLEPHRINE HYDROCHLORIDE OR ACETAMINOPHEN\DEXTROMETHORPHAN HYDROBROMIDE\DOXYLAMINE SUCCINATE\PHENYLEPHRINE HYDROCHLORIDE
     Indication: OROPHARYNGEAL PAIN
     Dosage: 1 TABLET ORALLY EVERY 3 HOURS
     Route: 048
     Dates: start: 20140129, end: 20140131

REACTIONS (2)
  - Ageusia [None]
  - Anosmia [None]

NARRATIVE: CASE EVENT DATE: 20140202
